FAERS Safety Report 5559468-X (Version None)
Quarter: 2007Q4

REPORT INFORMATION
  Report Type: 
  Country: None (occurrence: None)
  Receive Date: 20071214
  Receipt Date: 20071003
  Transmission Date: 20080405
  Serious: No
  Sender: FDA-Public Use
  Company Number: US-ABBOTT-07P-163-0419602-00

PATIENT
  Sex: Male
  Weight: 89.71 kg

DRUGS (5)
  1. HUMIRA [Suspect]
     Indication: CROHN'S DISEASE
     Route: 058
     Dates: start: 20070701
  2. PREDNISONE [Suspect]
     Indication: DRUG USE FOR UNKNOWN INDICATION
  3. PROBIOTICS [Concomitant]
     Indication: DRUG USE FOR UNKNOWN INDICATION
  4. METRONIDAZOLE HCL [Concomitant]
     Indication: DRUG USE FOR UNKNOWN INDICATION
  5. MESALAMINE [Concomitant]
     Indication: DRUG USE FOR UNKNOWN INDICATION

REACTIONS (7)
  - ARTHRALGIA [None]
  - DIARRHOEA [None]
  - DRUG INEFFECTIVE [None]
  - FATIGUE [None]
  - HAEMORRHAGE [None]
  - OEDEMA PERIPHERAL [None]
  - WEIGHT INCREASED [None]
